FAERS Safety Report 20789145 (Version 2)
Quarter: 2022Q3

REPORT INFORMATION
  Report Type: Spontaneous
  Country: FR (occurrence: FR)
  Receive Date: 20220505
  Receipt Date: 20220713
  Transmission Date: 20221027
  Serious: Yes (Hospitalization, Other)
  Sender: FDA-Public Use
  Company Number: None

PATIENT

DRUGS (1)
  1. ZONISAMIDE [Suspect]
     Active Substance: ZONISAMIDE
     Indication: Epilepsy
     Dosage: ZONEGRAN
     Route: 048
     Dates: start: 20220207

REACTIONS (6)
  - Toxic skin eruption [Recovered/Resolved]
  - Lip oedema [Recovered/Resolved]
  - Vulval oedema [Recovered/Resolved]
  - Lymphadenopathy [Recovered/Resolved]
  - Eosinophilia [Recovering/Resolving]
  - Prerenal failure [Recovered/Resolved]

NARRATIVE: CASE EVENT DATE: 20220416
